FAERS Safety Report 9220781 (Version 1)
Quarter: 2013Q2

REPORT INFORMATION
  Report Type: Spontaneous
  Country: US (occurrence: US)
  Receive Date: 20130409
  Receipt Date: 20130409
  Transmission Date: 20140414
  Serious: Yes (Other)
  Sender: FDA-Public Use
  Company Number: US-PFIZER INC-2013107119

PATIENT
  Age: 81 Year
  Sex: Female
  Weight: 68.03 kg

DRUGS (2)
  1. TOVIAZ [Suspect]
     Indication: URINARY INCONTINENCE
     Dosage: 4 MG, 1X/DAY (DAILY)
     Route: 048
     Dates: start: 20130326
  2. PRILOSEC [Concomitant]
     Dosage: 20 MG, 1X/DAY (DAILY)

REACTIONS (2)
  - Myalgia [Not Recovered/Not Resolved]
  - Fibromyalgia [Not Recovered/Not Resolved]
